FAERS Safety Report 6413111-6 (Version None)
Quarter: 2009Q4

REPORT INFORMATION
  Report Type: 
  Country: None (occurrence: None)
  Receive Date: 20091022
  Receipt Date: 20091022
  Transmission Date: 20100525
  Serious: Yes (Other)
  Sender: FDA-Public Use
  Company Number: None

PATIENT
  Age: 15 Year
  Sex: Male
  Weight: 54.4316 kg

DRUGS (1)
  1. CLARAVIS [Suspect]
     Indication: ACNE
     Dosage: 30MG ONCE DAILY PO
     Route: 048
     Dates: start: 20091002, end: 20091015

REACTIONS (5)
  - DELUSION [None]
  - HALLUCINATION, AUDITORY [None]
  - PANIC ATTACK [None]
  - PARANOIA [None]
  - PSYCHOTIC BEHAVIOUR [None]
